FAERS Safety Report 7815451-2 (Version None)
Quarter: 2011Q4

REPORT INFORMATION
  Report Type: 
  Country: None (occurrence: None)
  Receive Date: 20111014
  Receipt Date: 20111005
  Transmission Date: 20120403
  Serious: Yes (Hospitalization, Other)
  Sender: FDA-Public Use
  Company Number: PHHY2011CA89004

PATIENT
  Sex: Male

DRUGS (1)
  1. GLEEVEC [Suspect]
     Indication: CHRONIC MYELOID LEUKAEMIA
     Route: 048

REACTIONS (7)
  - PULMONARY THROMBOSIS [None]
  - SINUSITIS [None]
  - CEREBRAL HAEMORRHAGE [None]
  - THROMBOSIS [None]
  - SUBDURAL HAEMATOMA [None]
  - CONVULSION [None]
  - HEADACHE [None]
